FAERS Safety Report 12971254 (Version 1)
Quarter: 2016Q4

REPORT INFORMATION
  Report Type: Spontaneous
  Country: US (occurrence: US)
  Receive Date: 20161123
  Receipt Date: 20161123
  Transmission Date: 20170207
  Serious: No
  Sender: FDA-Public Use
  Company Number: US-JAZZ-2016-US-019579

PATIENT
  Sex: Female

DRUGS (40)
  1. STRATTERA [Concomitant]
     Active Substance: ATOMOXETINE HYDROCHLORIDE
  2. XYREM [Suspect]
     Active Substance: SODIUM OXYBATE
     Dosage: 4.5 G, BID
     Route: 048
     Dates: start: 201305
  3. TOPAMAX [Concomitant]
     Active Substance: TOPIRAMATE
  4. DILAUDID [Concomitant]
     Active Substance: HYDROMORPHONE HYDROCHLORIDE
  5. FLURAZEPAM [Concomitant]
     Active Substance: FLURAZEPAM\FLURAZEPAM HYDROCHLORIDE
  6. ADDERALL XR [Concomitant]
     Active Substance: AMPHETAMINE ASPARTATE\AMPHETAMINE SULFATE\DEXTROAMPHETAMINE SACCHARATE\DEXTROAMPHETAMINE SULFATE
  7. BUSPIRONE [Concomitant]
     Active Substance: BUSPIRONE HYDROCHLORIDE
  8. NEOMYCIN AND POLYMYXIN B SULFATES AND HYDROCO [Concomitant]
  9. PROMETHAZINE [Concomitant]
     Active Substance: PROMETHAZINE\PROMETHAZINE HYDROCHLORIDE
  10. ZOFRAN [Concomitant]
     Active Substance: ONDANSETRON HYDROCHLORIDE
  11. XYREM [Suspect]
     Active Substance: SODIUM OXYBATE
     Indication: INSOMNIA
     Dosage: 3 G, BID
     Route: 048
     Dates: start: 200712, end: 200808
  12. HORIZANT [Concomitant]
     Active Substance: GABAPENTIN ENACARBIL
  13. VITAMIN D3 [Concomitant]
     Active Substance: CHOLECALCIFEROL
  14. SOMA [Concomitant]
     Active Substance: CARISOPRODOL
  15. ALBUTEROL SULFATE HFA [Concomitant]
     Active Substance: ALBUTEROL SULFATE
  16. LORTAB [Concomitant]
     Active Substance: ACETAMINOPHEN\HYDROCODONE BITARTRATE
  17. NEXIUM DR                             /01479302/ [Concomitant]
  18. PATADAY [Concomitant]
     Active Substance: OLOPATADINE HYDROCHLORIDE
  19. XANAX [Concomitant]
     Active Substance: ALPRAZOLAM
  20. OXYCONTIN [Concomitant]
     Active Substance: OXYCODONE HYDROCHLORIDE
  21. DYMISTA [Concomitant]
     Active Substance: AZELASTINE HYDROCHLORIDE\FLUTICASONE PROPIONATE
  22. ELMIRON [Concomitant]
     Active Substance: PENTOSAN POLYSULFATE SODIUM
  23. NAPROXEN DR [Concomitant]
  24. XYREM [Suspect]
     Active Substance: SODIUM OXYBATE
     Dosage: 4.25 G, BID
     Route: 048
     Dates: start: 201112, end: 2013
  25. MIRALAX [Concomitant]
     Active Substance: POLYETHYLENE GLYCOL 3350
  26. SEROQUEL [Concomitant]
     Active Substance: QUETIAPINE FUMARATE
  27. VERAPAMIL XR [Concomitant]
  28. ZOFRAN ODT                             /00955301/ [Concomitant]
  29. SKELAXIN [Concomitant]
     Active Substance: METAXALONE
  30. LEVOCETIRIZINE [Concomitant]
     Active Substance: LEVOCETIRIZINE
  31. MELOXICAM. [Concomitant]
     Active Substance: MELOXICAM
  32. XYREM [Suspect]
     Active Substance: SODIUM OXYBATE
     Dosage: 3.75 G, BID
     Route: 048
     Dates: start: 200808, end: 2009
  33. NITROFURANTOIN MCR [Concomitant]
  34. XYREM [Suspect]
     Active Substance: SODIUM OXYBATE
     Dosage: 3.75 G, BID
     Route: 048
     Dates: start: 201007, end: 2011
  35. DIAZEPAM. [Concomitant]
     Active Substance: DIAZEPAM
  36. CLINDAMYCIN PHOSPHATE. [Concomitant]
     Active Substance: CLINDAMYCIN PHOSPHATE
  37. DICYCLOMINE                        /00068601/ [Concomitant]
     Active Substance: DICYCLOMINE HYDROCHLORIDE
  38. ZOLOFT [Concomitant]
     Active Substance: SERTRALINE HYDROCHLORIDE
  39. QSYMIA [Concomitant]
     Active Substance: PHENTERMINE HYDROCHLORIDE\TOPIRAMATE
  40. CYMBALTA [Concomitant]
     Active Substance: DULOXETINE HYDROCHLORIDE

REACTIONS (1)
  - Anxiety [Not Recovered/Not Resolved]
